FAERS Safety Report 9931807 (Version 1)
Quarter: 2014Q1

REPORT INFORMATION
  Report Type: Spontaneous
  Country: US (occurrence: None)
  Receive Date: 20140227
  Receipt Date: 20140227
  Transmission Date: 20141002
  Serious: Yes (Other)
  Sender: FDA-Public Use
  Company Number: None

PATIENT
  Age: 68 Year
  Sex: Female
  Weight: 56.7 kg

DRUGS (1)
  1. LEFLUNOMIDE 20MG MFG HERITAGE/WALGREEN^S [Suspect]
     Indication: ARTHRALGIA
     Dosage: 1 TAB, 3 TIMES A WEEK, TAKEN BY MOUTH
     Route: 048
     Dates: start: 20130804, end: 20131212

REACTIONS (3)
  - Cough [None]
  - Productive cough [None]
  - Treatment noncompliance [None]
